FAERS Safety Report 9001905 (Version 1)
Quarter: 2013Q1

REPORT INFORMATION
  Report Type: Report from Study
  Country: US (occurrence: US)
  Receive Date: 20130107
  Receipt Date: 20130107
  Transmission Date: 20140127
  Serious: Yes (Hospitalization, Other)
  Sender: FDA-Public Use
  Company Number: US-ABBOTT-12P-163-1029003-00

PATIENT
  Age: 72 Year
  Sex: Female

DRUGS (13)
  1. HUMIRA [Suspect]
     Indication: RHEUMATOID ARTHRITIS
     Dates: end: 200805
  2. HUMIRA [Suspect]
     Dates: start: 201206
  3. PLAQUENIL [Concomitant]
     Indication: PRODUCT USED FOR UNKNOWN INDICATION
  4. CELEBREX [Concomitant]
     Indication: PRODUCT USED FOR UNKNOWN INDICATION
  5. CALCIUM + VITAMIN D [Concomitant]
     Indication: PRODUCT USED FOR UNKNOWN INDICATION
     Dosage: 600 MG DAILY
  6. FISH OIL [Concomitant]
     Indication: PRODUCT USED FOR UNKNOWN INDICATION
  7. BIOTIN [Concomitant]
     Indication: VITAMIN SUPPLEMENTATION
     Dosage: 1000 MG DAILY
  8. MULTIVITAMIN [Concomitant]
     Indication: VITAMIN SUPPLEMENTATION
     Dosage: DAILY
  9. METHOTREXATE [Concomitant]
     Indication: PRODUCT USED FOR UNKNOWN INDICATION
     Dates: end: 200805
  10. METHOTREXATE [Concomitant]
     Dates: start: 200812
  11. PREDNISONE [Concomitant]
     Indication: PRODUCT USED FOR UNKNOWN INDICATION
     Dates: end: 200805
  12. PREDNISONE [Concomitant]
     Dates: start: 200812
  13. VITAMIN D [Concomitant]
     Indication: PRODUCT USED FOR UNKNOWN INDICATION
     Dosage: 100MG DAILY

REACTIONS (16)
  - Bone erosion [Recovered/Resolved]
  - Breast cancer [Recovered/Resolved]
  - Atrial fibrillation [Recovered/Resolved]
  - Cataract [Recovered/Resolved]
  - Rheumatoid arthritis [Not Recovered/Not Resolved]
  - Syncope [Recovered/Resolved]
  - Pseudomonas infection [Recovered/Resolved]
  - Muscular weakness [Unknown]
  - Lumbar spinal stenosis [Unknown]
  - Arthritis [Unknown]
  - Weight bearing difficulty [Unknown]
  - Pain in extremity [Unknown]
  - Laceration [Unknown]
  - Syncope [Unknown]
  - Injection site haemorrhage [Recovered/Resolved]
  - Injection site rash [Unknown]
